FAERS Safety Report 6524619-7 (Version None)
Quarter: 2010Q1

REPORT INFORMATION
  Report Type: 
  Country: None (occurrence: None)
  Receive Date: 20100104
  Receipt Date: 20091223
  Transmission Date: 20100710
  Serious: Yes (Other)
  Sender: FDA-Public Use
  Company Number: PHEH2009US18314

PATIENT
  Sex: Female

DRUGS (13)
  1. RECLAST [Suspect]
  2. CEFACLOR [Concomitant]
  3. RYTHMOL [Concomitant]
  4. CRESTOR [Concomitant]
  5. TICLID [Concomitant]
  6. HYDROCORTISONE [Concomitant]
  7. CYTOTEC [Concomitant]
  8. NEXIUM [Concomitant]
  9. NITROGLYCERIN [Concomitant]
  10. MIRTAZAPINE [Concomitant]
  11. PHENAZOPYRIDINE [Concomitant]
  12. MIRALAX [Concomitant]
  13. TYLENOL (CAPLET) [Concomitant]

REACTIONS (9)
  - ASTHENIA [None]
  - BACK PAIN [None]
  - DIARRHOEA [None]
  - DYSARTHRIA [None]
  - DYSSTASIA [None]
  - FEELING ABNORMAL [None]
  - LOSS OF CONSCIOUSNESS [None]
  - PYREXIA [None]
  - VOMITING [None]
